FAERS Safety Report 6890419-1 (Version None)
Quarter: 2010Q3

REPORT INFORMATION
  Report Type: 
  Country: None (occurrence: None)
  Receive Date: 20100730
  Receipt Date: 20081021
  Transmission Date: 20110219
  Serious: No
  Sender: FDA-Public Use
  Company Number: US-PFIZER INC-2008076211

PATIENT
  Sex: Male

DRUGS (5)
  1. LIPITOR [Suspect]
     Indication: CORONARY ARTERY DISEASE
  2. LIPITOR [Suspect]
     Indication: HYPERLIPIDAEMIA
  3. ACETYLSALICYLIC ACID SRT [Concomitant]
  4. AMIODARONE HCL [Concomitant]
  5. METOPROLOL TARTRATE [Concomitant]

REACTIONS (4)
  - ASTHENIA [None]
  - HOT FLUSH [None]
  - HYPERHIDROSIS [None]
  - MYALGIA [None]
